FAERS Safety Report 5061269-6 (Version None)
Quarter: 2006Q3

REPORT INFORMATION
  Report Type: 
  Country: None (occurrence: None)
  Receive Date: 20060720
  Receipt Date: 20060711
  Transmission Date: 20061208
  Serious: Yes (Death, Other)
  Sender: FDA-Public Use
  Company Number: 2006080082

PATIENT
  Age: 69 Year
  Sex: Male

DRUGS (8)
  1. ATORVASTATIN CALCIUM [Suspect]
     Indication: DRUG USE FOR UNKNOWN INDICATION
     Dosage: 40 MG (40 MG, 1 IN 1 D), ORAL
     Route: 048
     Dates: end: 20060523
  2. GLUCOPHAGE [Suspect]
     Indication: DRUG USE FOR UNKNOWN INDICATION
     Dosage: 1700 MG (1700 MG, 1 IN 1 D), ORAL
     Route: 048
     Dates: end: 20060523
  3. TERCIAN (CYAMEMAZINE) [Suspect]
     Indication: DRUG USE FOR UNKNOWN INDICATION
     Dosage: 1 DOSE FORM  (2 IN 1 D), ORAL
     Route: 048
     Dates: start: 20060516, end: 20060523
  4. NEXIUM [Suspect]
     Indication: DRUG USE FOR UNKNOWN INDICATION
     Dosage: 20 G (20 MG, 1 IN 1 D), ORAL
     Route: 048
     Dates: end: 20060523
  5. ESCITALOPRAM (ESCITALOPRAM) [Suspect]
     Indication: DRUG USE FOR UNKNOWN INDICATION
     Dosage: 10 MG (10 MG, 1 IN 1 D), ORAL
     Route: 048
     Dates: start: 20060222, end: 20060516
  6. RAMIPRIL [Suspect]
     Indication: DRUG USE FOR UNKNOWN INDICATION
     Dosage: 2.5 MG (2.5 MG, 1 IN 1 D),ORAL
     Route: 048
     Dates: end: 20060523
  7. ASPIRIN [Concomitant]
  8. LASIX [Concomitant]

REACTIONS (3)
  - COMPLETED SUICIDE [None]
  - INJURY ASPHYXIATION [None]
  - PARANOIA [None]
